FAERS Safety Report 5297284-7 (Version None)
Quarter: 2007Q2

REPORT INFORMATION
  Report Type: 
  Country: None (occurrence: None)
  Receive Date: 20070416
  Receipt Date: 20070402
  Transmission Date: 20071010
  Serious: Yes (Hospitalization, Other)
  Sender: FDA-Public Use
  Company Number: US-ELI_LILLY_AND_COMPANY-US200602002461

PATIENT
  Age: 21 Year
  Sex: Female
  Weight: 171 kg

DRUGS (38)
  1. GEODON [Concomitant]
     Dosage: 80 MG, 2/D
  2. GEODON [Concomitant]
     Dates: start: 20040127, end: 20060101
  3. DEPAKOTE [Concomitant]
     Dosage: 750 MG, 2/D
     Route: 048
     Dates: end: 20040714
  4. DEPAKOTE [Concomitant]
     Dosage: 500 MG, 2/D
     Route: 048
     Dates: start: 20040714, end: 20040820
  5. DEPAKOTE [Concomitant]
     Dosage: 1000 MG, 2/D
     Route: 048
     Dates: start: 20040820
  6. DEPAKOTE [Concomitant]
     Dates: start: 20030101, end: 20060101
  7. HALOPERIDOL [Concomitant]
     Dosage: 10 MG, 2/D
     Dates: start: 20040820
  8. BENZTROPINE MESYLATE [Concomitant]
     Dosage: 2 UNK, 2/D
     Route: 048
     Dates: start: 20040820
  9. SEROQUEL [Concomitant]
     Dates: start: 20040101
  10. SEROQUEL [Concomitant]
     Dates: start: 20010101
  11. SEROQUEL [Concomitant]
     Dates: start: 20060101
  12. RISPERDAL                               /SWE/ [Concomitant]
     Dates: start: 20040101
  13. RISPERDAL                               /SWE/ [Concomitant]
     Dates: start: 19980101
  14. TEGRETOL [Concomitant]
     Dates: start: 20040101
  15. TEGRETOL [Concomitant]
     Dates: start: 19990101
  16. LITHIUM CARBONATE [Concomitant]
     Dosage: UNK, UNK
     Dates: start: 20040101
  17. PAXIL [Concomitant]
     Dates: start: 20040101
  18. LOPRESSOR [Concomitant]
     Dates: start: 20040101
  19. INAPSINE [Concomitant]
     Dates: start: 19990101
  20. CHLORPROMAZINE [Concomitant]
     Dates: start: 20060101
  21. ATIVAN [Concomitant]
     Dates: start: 19980101
  22. ATIVAN [Concomitant]
     Dates: start: 20040101
  23. ATIVAN [Concomitant]
     Dates: start: 20060101
  24. GABAPENTIN [Concomitant]
     Dates: start: 20060101
  25. TEMAZEPAM [Concomitant]
     Dates: start: 20060101
  26. ATORVASTATIN CALCIUM [Concomitant]
     Dates: start: 20010101
  27. RAMIPRIL [Concomitant]
     Dates: start: 20020101
  28. HYDROCHLOROTHIAZIDE [Concomitant]
     Dosage: UNK, UNK
     Dates: start: 20060101
  29. CLONIDINE [Concomitant]
     Dates: start: 20060101
  30. VALSARTAN [Concomitant]
     Dates: start: 20060101
  31. ZYPREXA [Suspect]
     Indication: SCHIZOPHRENIA
     Dosage: 10 MG, 2/D
     Route: 048
     Dates: start: 20040611, end: 20040712
  32. ZYPREXA [Suspect]
     Dates: end: 20041101
  33. ZYPREXA [Suspect]
     Route: 048
     Dates: start: 20030101
  34. ZYPREXA [Suspect]
     Dosage: 25 MG, EACH EVENING
     Route: 048
     Dates: start: 20030913
  35. ZYPREXA [Suspect]
     Dosage: 5 MG, UNK
     Dates: start: 19980101, end: 20030101
  36. ZYPREXA [Suspect]
     Dosage: 10 MG, UNK
     Dates: start: 19980101, end: 20030101
  37. ZYPREXA [Suspect]
     Dosage: 20 MG, UNK
     Dates: start: 19980101, end: 20030101
  38. ZYPREXA [Suspect]
     Dosage: 25 MG, UNK
     Dates: start: 19980101, end: 20030101

REACTIONS (13)
  - DIABETES MELLITUS NON-INSULIN-DEPENDENT [None]
  - DIABETIC COMPLICATION [None]
  - DIABETIC KETOACIDOSIS [None]
  - DYSLIPIDAEMIA [None]
  - HYPERGLYCAEMIA [None]
  - HYPERTENSION [None]
  - NAUSEA [None]
  - POLYDIPSIA [None]
  - POLYURIA [None]
  - PRESCRIBED OVERDOSE [None]
  - THROMBOCYTOPENIA [None]
  - URINARY TRACT INFECTION [None]
  - WEIGHT INCREASED [None]
